FAERS Safety Report 10087919 (Version 2)
Quarter: 2014Q2

REPORT INFORMATION
  Report Type: Spontaneous
  Country: US (occurrence: US)
  Receive Date: 20140418
  Receipt Date: 20140418
  Transmission Date: 20141212
  Serious: No
  Sender: FDA-Public Use
  Company Number: US-PURDUE-USA-2014-0109943

PATIENT
  Age: 66 Year
  Sex: Male
  Weight: 120.18 kg

DRUGS (6)
  1. OXYCONTIN (NDA 22-272) [Suspect]
     Indication: NECK PAIN
     Dosage: 15 MG, BID
     Route: 048
     Dates: start: 20130725
  2. OXYCONTIN (NDA 22-272) [Suspect]
     Indication: ARTHRALGIA
  3. OXYCODONE HYDROCHLORIDE (SIMILAR TO NDA 22-272) [Suspect]
     Indication: NECK PAIN
     Dosage: 5 MG, Q6H PRN
     Route: 048
     Dates: start: 20130725
  4. OXYCODONE HYDROCHLORIDE (SIMILAR TO NDA 22-272) [Suspect]
     Indication: ARTHRALGIA
  5. MODAFINIL [Concomitant]
     Indication: NARCOLEPSY
     Dosage: 200 MG, DAILY
     Route: 048
  6. DIAZEPAM [Concomitant]
     Indication: NECK PAIN
     Dosage: 5 MG, DAILY PRN
     Route: 048

REACTIONS (3)
  - Drug effect increased [Recovered/Resolved]
  - Hangover [Recovered/Resolved]
  - Nausea [Recovered/Resolved]
